FAERS Safety Report 9507817 (Version 3)
Quarter: 2013Q3

REPORT INFORMATION
  Report Type: Spontaneous
  Country: JP (occurrence: JP)
  Receive Date: 20130909
  Receipt Date: 20130923
  Transmission Date: 20140515
  Serious: Yes (Other)
  Sender: FDA-Public Use
  Company Number: JP-PFIZER INC-2013254955

PATIENT
  Sex: 0

DRUGS (2)
  1. NORVASC [Suspect]
     Dosage: UNK
     Route: 048
  2. NU LOTAN [Suspect]

REACTIONS (1)
  - Inappropriate antidiuretic hormone secretion [Unknown]
